FAERS Safety Report 6369483-4 (Version None)
Quarter: 2009Q3

REPORT INFORMATION
  Report Type: 
  Country: None (occurrence: None)
  Receive Date: 20090923
  Receipt Date: 20090917
  Transmission Date: 20100115
  Serious: Yes (Death)
  Sender: FDA-Public Use
  Company Number: US-CELGENEUS-163-21880-09091438

PATIENT
  Sex: Male

DRUGS (3)
  1. REVLIMID [Suspect]
     Route: 048
     Dates: start: 20090801, end: 20090901
  2. REVLIMID [Suspect]
     Route: 048
     Dates: start: 20081001, end: 20090101
  3. REVLIMID [Suspect]
     Route: 048
     Dates: start: 20090601, end: 20090801

REACTIONS (1)
  - DEATH [None]
